FAERS Safety Report 8302381-5 (Version None)
Quarter: 2012Q2

REPORT INFORMATION
  Report Type: 
  Country: None (occurrence: None)
  Receive Date: 20120420
  Receipt Date: 20120410
  Transmission Date: 20120825
  Serious: Yes (Hospitalization)
  Sender: FDA-Public Use
  Company Number: US-JNJFOC-20120405663

PATIENT
  Age: 36 Year
  Sex: Female

DRUGS (3)
  1. TRAZODONE HCL [Concomitant]
     Route: 048
  2. INVEGA SUSTENNA [Suspect]
     Indication: SCHIZOPHRENIA
     Route: 030
  3. INVEGA SUSTENNA [Suspect]
     Route: 030
     Dates: start: 20120305

REACTIONS (3)
  - MUSCULOSKELETAL STIFFNESS [None]
  - FOAMING AT MOUTH [None]
  - MUSCLE RIGIDITY [None]
